FAERS Safety Report 6824630-2 (Version None)
Quarter: 2010Q3

REPORT INFORMATION
  Report Type: 
  Country: None (occurrence: None)
  Receive Date: 20100708
  Receipt Date: 20061110
  Transmission Date: 20110219
  Serious: No
  Sender: FDA-Public Use
  Company Number: US-PFIZER INC-2006140567

PATIENT
  Sex: Female
  Weight: 81.19 kg

DRUGS (10)
  1. CHANTIX [Suspect]
     Indication: SMOKING CESSATION THERAPY
     Dates: start: 20061102
  2. INSULIN [Concomitant]
  3. HUMALOG [Concomitant]
  4. TOPROL-XL [Concomitant]
  5. AVAPRO [Concomitant]
  6. LASIX [Concomitant]
  7. ALLEGRA [Concomitant]
  8. PLAVIX [Concomitant]
  9. PREVACID [Concomitant]
  10. VITAMINS [Concomitant]

REACTIONS (3)
  - HEADACHE [None]
  - NAUSEA [None]
  - RETCHING [None]
